FAERS Safety Report 5517105-4 (Version None)
Quarter: 2007Q4

REPORT INFORMATION
  Report Type: 
  Country: None (occurrence: None)
  Receive Date: 20071114
  Receipt Date: 20071108
  Transmission Date: 20080405
  Serious: Yes (Disabling)
  Sender: FDA-Public Use
  Company Number: DK-BRISTOL-MYERS SQUIBB COMPANY-13974894

PATIENT
  Age: 53 Year
  Sex: Male
  Weight: 82 kg

DRUGS (2)
  1. TRIAMCINOLONE [Suspect]
     Indication: EPICONDYLITIS
  2. LIDOCAINE [Concomitant]
     Dates: start: 20070827, end: 20070827

REACTIONS (1)
  - ERECTILE DYSFUNCTION [None]
